FAERS Safety Report 25595695 (Version 1)
Quarter: 2025Q3

REPORT INFORMATION
  Report Type: Spontaneous
  Country: US (occurrence: US)
  Receive Date: 20250723
  Receipt Date: 20250723
  Transmission Date: 20251021
  Serious: Yes (Other)
  Sender: AMGEN
  Company Number: US-AMGEN-USASP2025140629

PATIENT

DRUGS (10)
  1. PREDNISONE [Suspect]
     Active Substance: PREDNISONE
     Indication: Diffuse large B-cell lymphoma
     Dosage: UNK UNK, Q3WK, (C1 -6)
     Route: 065
  2. RITUXIMAB [Suspect]
     Active Substance: RITUXIMAB
     Indication: Diffuse large B-cell lymphoma
     Dosage: UNK UNK, Q3WK, (C1 -6)
     Route: 065
  3. EPCORITAMAB [Concomitant]
     Active Substance: EPCORITAMAB
     Indication: Diffuse large B-cell lymphoma
     Dosage: 48 MILLIGRAM, QWK, CYCLES [CS] 1-2 [21 D EACH]
     Route: 058
  4. EPCORITAMAB [Concomitant]
     Active Substance: EPCORITAMAB
     Dosage: UNK, Q3WK,C3-6 [21 D EACH]
     Route: 058
  5. EPCORITAMAB [Concomitant]
     Active Substance: EPCORITAMAB
     Dosage: UNK, Q4WK,  C7-8 [28 D EACH]
     Route: 058
  6. EPCORITAMAB [Concomitant]
     Active Substance: EPCORITAMAB
     Route: 058
  7. EPCORITAMAB [Concomitant]
     Active Substance: EPCORITAMAB
     Route: 058
  8. CYCLOPHOSPHAMIDE [Concomitant]
     Active Substance: CYCLOPHOSPHAMIDE
     Indication: Diffuse large B-cell lymphoma
     Dosage: UNK UNK, Q3WK
  9. DOXORUBICIN [Concomitant]
     Active Substance: DOXORUBICIN
     Indication: Diffuse large B-cell lymphoma
     Dosage: UNK UNK, Q3WK
  10. VINCRISTINE [Concomitant]
     Active Substance: VINCRISTINE
     Indication: Diffuse large B-cell lymphoma
     Dosage: UNK UNK, Q3WK

REACTIONS (7)
  - Cytokine release syndrome [Recovered/Resolved]
  - Pneumonia [Unknown]
  - Neutropenia [Unknown]
  - Constipation [Unknown]
  - Fatigue [Unknown]
  - Anaemia [Unknown]
  - Fall [Unknown]
